FAERS Safety Report 20104499 (Version 7)
Quarter: 2022Q1

REPORT INFORMATION
  Report Type: Report from Study
  Country: JP (occurrence: JP)
  Receive Date: 20211123
  Receipt Date: 20220120
  Transmission Date: 20220423
  Serious: Yes (Hospitalization)
  Sender: FDA-Public Use
  Company Number: JP-SEATTLE GENETICS-2021SGN06022

PATIENT
  Age: 67 Year
  Sex: Female
  Weight: 58.9 kg

DRUGS (5)
  1. TUCATINIB [Suspect]
     Active Substance: TUCATINIB
     Indication: HER2 positive breast cancer
     Dosage: 300 MG, BID
     Route: 048
     Dates: start: 20211027, end: 20211120
  2. ADO-TRASTUZUMAB EMTANSINE [Suspect]
     Active Substance: ADO-TRASTUZUMAB EMTANSINE
     Indication: HER2 positive breast cancer
     Dosage: 3.6 MG/KG, Q3WEEKS
     Route: 042
     Dates: start: 20211027, end: 20211122
  3. PREGABALIN [Concomitant]
     Active Substance: PREGABALIN
     Indication: Tumour pain
     Dosage: 150 MG
     Dates: start: 20210210
  4. GUAIAZULENE [Concomitant]
     Active Substance: GUAIAZULENE
     Indication: Epistaxis
     Dosage: UNK
     Dates: start: 20211117
  5. DOMPERIDONE [Concomitant]
     Active Substance: DOMPERIDONE
     Indication: Nausea
     Dosage: 10 MG
     Dates: start: 20210728

REACTIONS (1)
  - Drug-induced liver injury [Recovered/Resolved]

NARRATIVE: CASE EVENT DATE: 20211122
